FAERS Safety Report 9134476 (Version 1)
Quarter: 2013Q1

REPORT INFORMATION
  Report Type: Spontaneous
  Country: JP (occurrence: JP)
  Receive Date: 20130304
  Receipt Date: 20130304
  Transmission Date: 20140127
  Serious: Yes (Hospitalization)
  Sender: FDA-Public Use
  Company Number: JP-BRISTOL-MYERS SQUIBB COMPANY-17409871

PATIENT
  Sex: 0

DRUGS (1)
  1. HYDREA [Suspect]

REACTIONS (1)
  - Renal failure acute [Unknown]
